FAERS Safety Report 24245613 (Version 2)
Quarter: 2024Q3

REPORT INFORMATION
  Report Type: Report from Study
  Country: US (occurrence: US)
  Receive Date: 20240824
  Receipt Date: 20240923
  Transmission Date: 20241016
  Serious: Yes (Other)
  Sender: ABBVIE
  Company Number: US-ABBVIE-5890423

PATIENT
  Sex: Male

DRUGS (1)
  1. SKYRIZI [Suspect]
     Active Substance: RISANKIZUMAB-RZAA
     Indication: Psoriasis
     Route: 058
     Dates: start: 20231114

REACTIONS (5)
  - Prostate cancer [Unknown]
  - Pain in extremity [Unknown]
  - Unevaluable event [Unknown]
  - Immune system disorder [Unknown]
  - Blood test abnormal [Unknown]
